FAERS Safety Report 15368192 (Version 4)
Quarter: 2018Q4

REPORT INFORMATION
  Report Type: Spontaneous
  Country: FR (occurrence: FR)
  Receive Date: 20180910
  Receipt Date: 20181003
  Transmission Date: 20190204
  Serious: Yes (Life-Threatening, Hospitalization, Other)
  Sender: FDA-Public Use
  Company Number: FR-ALLERGAN-1843989US

PATIENT
  Age: 57 Year
  Sex: Female

DRUGS (13)
  1. BISOPROLOL [Concomitant]
     Active Substance: BISOPROLOL
     Indication: PRODUCT USED FOR UNKNOWN INDICATION
     Dosage: UNK UNK, UNKNOWN
     Route: 065
  2. ZUCLOPENTHIXOL DECANOATE [Interacting]
     Active Substance: ZUCLOPENTHIXOL DECANOATE
     Indication: SCHIZOAFFECTIVE DISORDER
     Dosage: 300 MG, Q MONTH
     Route: 065
  3. CYAMEMAZINE [Suspect]
     Active Substance: CYAMEMAZINE
     Indication: SUICIDAL IDEATION
     Dosage: 25 TO 50 MG, QD (OVERDOSE)
     Route: 065
  4. ESCITALOPRAM OXALATE - BP [Suspect]
     Active Substance: ESCITALOPRAM OXALATE
     Indication: DEPRESSIVE SYMPTOM
     Dosage: 10 MG, QD
     Route: 065
  5. CYAMEMAZINE [Suspect]
     Active Substance: CYAMEMAZINE
     Indication: SCHIZOAFFECTIVE DISORDER
     Dosage: 50 TO 100 MG, QD (OVERDOSE)
     Route: 065
  6. LERCANIDIPINE [Suspect]
     Active Substance: LERCANIDIPINE
     Indication: HYPERTENSION
     Dosage: 300 MG, SINGLE (OVERDOSE)
     Route: 065
  7. LERCANIDIPINE [Suspect]
     Active Substance: LERCANIDIPINE
     Indication: SUICIDAL IDEATION
     Dosage: UNK, UNKNOWN
     Route: 065
  8. METFORMIN [Concomitant]
     Active Substance: METFORMIN HYDROCHLORIDE
     Indication: TYPE 2 DIABETES MELLITUS
     Dosage: UNK UNK, UNKNOWN
     Route: 065
  9. ZUCLOPENTHIXOL HYDROCHLORIDE [Interacting]
     Active Substance: ZUCLOPENTHIXOL HYDROCHLORIDE
     Indication: PRODUCT USED FOR UNKNOWN INDICATION
     Dosage: 5 MG, QD
     Route: 065
  10. CYAMEMAZINE [Suspect]
     Active Substance: CYAMEMAZINE
     Dosage: 750 MG, SINGLE (OVERDOSE)
     Route: 065
  11. ZUCLOPENTHIXOL ACETATE [Interacting]
     Active Substance: ZUCLOPENTHIXOL ACETATE
     Indication: SCHIZOAFFECTIVE DISORDER
     Dosage: 100 MG (OVERDOSE: MEDICATION ERROR)
     Route: 030
  12. ZUCLOPENTHIXOL HYDROCHLORIDE [Interacting]
     Active Substance: ZUCLOPENTHIXOL HYDROCHLORIDE
     Dosage: 40 MG, QD
     Route: 065
  13. CYAMEMAZINE [Suspect]
     Active Substance: CYAMEMAZINE
     Dosage: 50 MG, QD (OVERDOSE)
     Route: 065

REACTIONS (7)
  - Contraindicated product administered [Unknown]
  - Drug level increased [Unknown]
  - Product administration error [Unknown]
  - Wrong dosage formulation [Unknown]
  - Accidental overdose [Unknown]
  - Neuroleptic malignant syndrome [Recovered/Resolved]
  - Drug interaction [Unknown]
